FAERS Safety Report 7536255-4 (Version None)
Quarter: 2011Q2

REPORT INFORMATION
  Report Type: 
  Country: None (occurrence: None)
  Receive Date: 20110608
  Receipt Date: 20110608
  Transmission Date: 20111010
  Serious: Yes (Other)
  Sender: FDA-Public Use
  Company Number: None

PATIENT
  Age: 73 Year
  Sex: Male
  Weight: 88.4514 kg

DRUGS (1)
  1. BYSTOLIC [Suspect]

REACTIONS (2)
  - ADVERSE DRUG REACTION [None]
  - CARDIAC FAILURE [None]
